FAERS Safety Report 12061670 (Version 1)
Quarter: 2016Q1

REPORT INFORMATION
  Report Type: Spontaneous
  Country: US (occurrence: US)
  Receive Date: 20160210
  Receipt Date: 20160210
  Transmission Date: 20160526
  Serious: No
  Sender: FDA-Public Use
  Company Number: US-ALLERGAN-1504239US

PATIENT
  Age: 39 Year
  Sex: Female

DRUGS (2)
  1. JUVEDERM ULTRA [Suspect]
     Active Substance: HYALURONIC ACID
     Indication: SKIN WRINKLING
     Dosage: UNKNOWN
     Dates: start: 20150226, end: 20150226
  2. BOTOX COSMETIC [Suspect]
     Active Substance: ONABOTULINUMTOXINA
     Indication: SKIN WRINKLING
     Dosage: UNK UNK, SINGLE
     Route: 030
     Dates: start: 20150226, end: 20150226

REACTIONS (7)
  - Facial asymmetry [Not Recovered/Not Resolved]
  - Swelling face [Not Recovered/Not Resolved]
  - Skin disorder [Not Recovered/Not Resolved]
  - Lip disorder [Not Recovered/Not Resolved]
  - Facial paralysis [Not Recovered/Not Resolved]
  - Sensation of foreign body [Not Recovered/Not Resolved]
  - Off label use [Unknown]

NARRATIVE: CASE EVENT DATE: 20150302
